FAERS Safety Report 20179909 (Version 1)
Quarter: 2021Q4

REPORT INFORMATION
  Report Type: Spontaneous
  Country: US (occurrence: US)
  Receive Date: 20211214
  Receipt Date: 20211214
  Transmission Date: 20220303
  Serious: No
  Sender: FDA-Public Use
  Company Number: US-JNJFOC-20211212159

PATIENT
  Age: 88 Year
  Sex: Male

DRUGS (1)
  1. PEPCID AC [Suspect]
     Active Substance: FAMOTIDINE
     Indication: Gastric pH decreased
     Dosage: ONE TABLET
     Route: 065
     Dates: start: 20211202, end: 20211202

REACTIONS (3)
  - Flushing [Not Recovered/Not Resolved]
  - Formication [Not Recovered/Not Resolved]
  - Pruritus [Not Recovered/Not Resolved]
